FAERS Safety Report 4399393-3 (Version None)
Quarter: 2004Q2

REPORT INFORMATION
  Report Type: 
  Country: None (occurrence: None)
  Receive Date: 20040607
  Receipt Date: 20040302
  Transmission Date: 20050107
  Serious: No
  Sender: FDA-Public Use
  Company Number: US-SHR-04-020470

PATIENT
  Age: 74 Year
  Sex: Female
  Weight: 94.8 kg

DRUGS (19)
  1. CAMPATH [Suspect]
     Indication: CHRONIC LYMPHOCYTIC LEUKAEMIA
     Dosage: 10 MG, SUBCUTANEOUS; 30 MG, SUBCUTANEOUS; 3 MG, SUBCUTANEOUS
     Route: 058
     Dates: start: 20040120, end: 20040130
  2. CAMPATH [Suspect]
     Indication: CHRONIC LYMPHOCYTIC LEUKAEMIA
     Dosage: 10 MG, SUBCUTANEOUS; 30 MG, SUBCUTANEOUS; 3 MG, SUBCUTANEOUS
     Route: 058
     Dates: start: 20040202, end: 20040202
  3. CAMPATH [Suspect]
     Indication: CHRONIC LYMPHOCYTIC LEUKAEMIA
     Dosage: 10 MG, SUBCUTANEOUS; 30 MG, SUBCUTANEOUS; 3 MG, SUBCUTANEOUS
     Route: 058
     Dates: start: 20040204
  4. BENADRYL [Concomitant]
  5. TYLENOL [Concomitant]
  6. BACTRIM [Concomitant]
  7. VALTREX [Concomitant]
  8. COMBIVENT (IPRATROPIUM BROMIDE) [Concomitant]
  9. CALTRATE [Concomitant]
  10. ADVAIR (SALMETEROL XINAFOATE, FLUTICASONE PROPIONATE) [Concomitant]
  11. NITRO-DUR [Concomitant]
  12. DULCOLAX [Concomitant]
  13. NITROGLYCERIN [Concomitant]
  14. K-DUR 10 [Concomitant]
  15. ALLOPURINOL [Concomitant]
  16. SYNTHROID [Concomitant]
  17. LASIX [Concomitant]
  18. ZANTAC (RANITIDINE HYDOCHLORIDE) [Concomitant]
  19. COLACE (DOCUSATE SODIUM) [Concomitant]

REACTIONS (3)
  - INJECTION SITE INFLAMMATION [None]
  - INJECTION SITE PAIN [None]
  - NIGHT SWEATS [None]
